FAERS Safety Report 10519353 (Version 1)
Quarter: 2014Q4

REPORT INFORMATION
  Report Type: Spontaneous
  Country: US (occurrence: US)
  Receive Date: 20141015
  Receipt Date: 20141015
  Transmission Date: 20150528
  Serious: No
  Sender: FDA-Public Use
  Company Number: US-ELI_LILLY_AND_COMPANY-US201409006387

PATIENT
  Sex: Male

DRUGS (2)
  1. CYMBALTA [Suspect]
     Active Substance: DULOXETINE HYDROCHLORIDE
     Indication: INJURY
     Dosage: 60 MG, EACH MORNING
     Route: 065
     Dates: start: 2004, end: 2013
  2. CYMBALTA [Suspect]
     Active Substance: DULOXETINE HYDROCHLORIDE
     Dosage: 60 MG, EACH MORNING
     Route: 065

REACTIONS (4)
  - Feeling abnormal [Unknown]
  - Off label use [Unknown]
  - Paraesthesia [Unknown]
  - Drug withdrawal syndrome [Unknown]
